FAERS Safety Report 16260234 (Version 4)
Quarter: 2019Q3

REPORT INFORMATION
  Report Type: Spontaneous
  Country: US (occurrence: US)
  Receive Date: 20190501
  Receipt Date: 20190809
  Transmission Date: 20191004
  Serious: Yes (Other)
  Sender: FDA-Public Use
  Company Number: US-PFIZER INC-2019174596

PATIENT
  Age: 82 Year
  Sex: Male
  Weight: 56.3 kg

DRUGS (4)
  1. VFEND [Suspect]
     Active Substance: VORICONAZOLE
     Indication: ORAL CANDIDIASIS
     Dosage: 5 ML, 2X/DAY
     Route: 048
  2. VFEND [Suspect]
     Active Substance: VORICONAZOLE
     Indication: CANDIDA INFECTION
  3. VFEND [Suspect]
     Active Substance: VORICONAZOLE
     Indication: FUNGAL INFECTION
     Dosage: 200 MG, 2X/DAY
     Route: 048
     Dates: start: 20190429
  4. VFEND [Suspect]
     Active Substance: VORICONAZOLE
     Indication: CANDIDA INFECTION
     Dosage: 200 MG, 2X/DAY
     Dates: start: 201905

REACTIONS (12)
  - Lymph node pain [Unknown]
  - Peripheral swelling [Not Recovered/Not Resolved]
  - Hallucination, visual [Unknown]
  - Tooth discolouration [Not Recovered/Not Resolved]
  - Lip swelling [Not Recovered/Not Resolved]
  - Swelling [Recovered/Resolved]
  - Joint swelling [Not Recovered/Not Resolved]
  - Nausea [Unknown]
  - Weight decreased [Not Recovered/Not Resolved]
  - Swelling face [Not Recovered/Not Resolved]
  - Epstein-Barr virus test positive [Unknown]
  - Photosensitivity reaction [Recovered/Resolved]

NARRATIVE: CASE EVENT DATE: 201905
